FAERS Safety Report 8509677-2 (Version None)
Quarter: 2012Q3

REPORT INFORMATION
  Report Type: 
  Country: None (occurrence: None)
  Receive Date: 20120713
  Receipt Date: 20120709
  Transmission Date: 20120928
  Serious: Yes (Other)
  Sender: FDA-Public Use
  Company Number: FR-GLAXOSMITHKLINE-B0814453A

PATIENT
  Sex: Female
  Weight: 50 kg

DRUGS (2)
  1. CHOP [Suspect]
     Indication: DIFFUSE LARGE B-CELL LYMPHOMA
     Route: 065
     Dates: start: 20100906, end: 20101220
  2. OFATUMUMAB [Suspect]
     Indication: DIFFUSE LARGE B-CELL LYMPHOMA
     Dosage: 1000MG PER DAY
     Route: 065
     Dates: start: 20100906, end: 20101220

REACTIONS (1)
  - BASAL CELL CARCINOMA [None]
